FAERS Safety Report 12711575 (Version 1)
Quarter: 2016Q3

REPORT INFORMATION
  Report Type: Spontaneous
  Country: CA (occurrence: CA)
  Receive Date: 20160902
  Receipt Date: 20160902
  Transmission Date: 20161109
  Serious: Yes (Hospitalization)
  Sender: FDA-Public Use
  Company Number: CA-CELGENEUS-CAN-2016085983

PATIENT
  Age: 84 Year
  Sex: Female

DRUGS (1)
  1. REVLIMID [Suspect]
     Active Substance: LENALIDOMIDE
     Indication: PLASMA CELL MYELOMA
     Dosage: 10 MILLIGRAM
     Route: 048
     Dates: start: 20150112

REACTIONS (5)
  - Malnutrition [Unknown]
  - Fall [Unknown]
  - Pneumonia [Unknown]
  - Dehydration [Unknown]
  - Wound [Unknown]

NARRATIVE: CASE EVENT DATE: 20160814
